FAERS Safety Report 19044694 (Version 1)
Quarter: 2021Q1

REPORT INFORMATION
  Report Type: Spontaneous
  Country: US (occurrence: US)
  Receive Date: 20210323
  Receipt Date: 20210323
  Transmission Date: 20210420
  Serious: No
  Sender: FDA-Public Use
  Company Number: None

PATIENT
  Age: 64 Year
  Sex: Female
  Weight: 63 kg

DRUGS (1)
  1. AMITRIPTYLINE HCL 25MG TABS [Suspect]
     Active Substance: AMITRIPTYLINE HYDROCHLORIDE
     Indication: MIGRAINE PROPHYLAXIS
     Route: 048
     Dates: start: 20210225, end: 20210322

REACTIONS (4)
  - Oropharyngeal discomfort [None]
  - Product substitution issue [None]
  - Foreign body in throat [None]
  - Burning sensation [None]

NARRATIVE: CASE EVENT DATE: 20210322
